FAERS Safety Report 10233660 (Version 1)
Quarter: 2014Q2

REPORT INFORMATION
  Report Type: Spontaneous
  Country: BE (occurrence: BE)
  Receive Date: 20140612
  Receipt Date: 20140612
  Transmission Date: 20141212
  Serious: Yes (Hospitalization, Other)
  Sender: FDA-Public Use
  Company Number: BE-ACTAVIS-2014-12996

PATIENT
  Age: 61 Year
  Sex: Female

DRUGS (10)
  1. LITHIUM CARBONATE (UNKNOWN) [Suspect]
     Indication: BIPOLAR DISORDER
     Dosage: UNK
     Route: 065
  2. IBUPROFEN (UNKNOWN) [Interacting]
     Indication: PROCEDURAL PAIN
     Dosage: UNKNOWN
     Route: 065
  3. MANIPREX [Interacting]
     Indication: BIPOLAR DISORDER
     Dosage: 250 MG, TID
     Route: 065
  4. VOLTAREN [Interacting]
     Indication: PROCEDURAL PAIN
     Dosage: 75 MG, UNKNOWN
     Route: 065
  5. SERTRALINE EG [Concomitant]
     Indication: PRODUCT USED FOR UNKNOWN INDICATION
     Dosage: 100 MG, UNKNOWN
     Route: 065
  6. ZYPREXA [Concomitant]
     Indication: PRODUCT USED FOR UNKNOWN INDICATION
     Dosage: 2.5 MG, UNKNOWN
     Route: 065
  7. TRAZODONE                          /00447702/ [Concomitant]
     Indication: PRODUCT USED FOR UNKNOWN INDICATION
     Dosage: 100 MG, UNKNOWN
     Route: 065
  8. TEMESTA                            /00273201/ [Concomitant]
     Indication: PRODUCT USED FOR UNKNOWN INDICATION
     Dosage: 2.5 MG, UNKNOWN
     Route: 065
  9. FENOGAL LIDOSE [Concomitant]
     Indication: PRODUCT USED FOR UNKNOWN INDICATION
     Dosage: 267 MG, UNKNOWN
     Route: 065
  10. NOVOMIX [Concomitant]
     Indication: TYPE 2 DIABETES MELLITUS
     Dosage: UNKNOWN
     Route: 065

REACTIONS (9)
  - Coma [Recovered/Resolved]
  - Renal failure acute [Recovered/Resolved]
  - Hypoglycaemia [Recovered/Resolved]
  - Hyperglycaemia [Recovered/Resolved]
  - Agitation [Recovered/Resolved]
  - Hypercalcaemia [Recovered/Resolved]
  - Hyperreflexia [Recovered/Resolved]
  - Drug level above therapeutic [Recovered/Resolved]
  - Drug interaction [Recovered/Resolved]
